FAERS Safety Report 5332785-4 (Version None)
Quarter: 2007Q2

REPORT INFORMATION
  Report Type: 
  Country: None (occurrence: None)
  Receive Date: 20070523
  Receipt Date: 20070514
  Transmission Date: 20071010
  Serious: Yes (Life-Threatening)
  Sender: FDA-Public Use
  Company Number: FR-PFIZER INC-2007039822

PATIENT
  Age: 60 Year
  Sex: Male

DRUGS (2)
  1. LYRICA [Suspect]
     Dosage: TEXT:2DF
     Route: 048
  2. TETRABENAZINE [Suspect]
     Indication: NERVOUS SYSTEM DISORDER
     Route: 048

REACTIONS (1)
  - ATRIAL FIBRILLATION [None]
